FAERS Safety Report 16041629 (Version 1)
Quarter: 2019Q1

REPORT INFORMATION
  Report Type: Spontaneous
  Country: US (occurrence: US)
  Receive Date: 20190306
  Receipt Date: 20190306
  Transmission Date: 20190418
  Serious: No
  Sender: FDA-Public Use
  Company Number: US-AKORN PHARMACEUTICALS-2018AKN01197

PATIENT
  Age: 22 Year
  Sex: Female

DRUGS (3)
  1. MYORISAN [Suspect]
     Active Substance: ISOTRETINOIN
     Dosage: 50 MG, 4X/WEEK
     Dates: start: 201807, end: 20180803
  2. ISOTRETINOIN. [Suspect]
     Active Substance: ISOTRETINOIN
     Dosage: UNK
     Dates: start: 2018, end: 2018
  3. MYORISAN [Suspect]
     Active Substance: ISOTRETINOIN
     Dosage: 30 MG, 4X/WEEK
     Dates: start: 201807, end: 20180803

REACTIONS (12)
  - Back pain [Unknown]
  - Arthralgia [Unknown]
  - Musculoskeletal stiffness [Unknown]
  - Urinary tract infection [Unknown]
  - Hypoaesthesia [Unknown]
  - Gait disturbance [Unknown]
  - Pain in jaw [Unknown]
  - Incorrect dose administered [Unknown]
  - Pain [Unknown]
  - Pain in extremity [Unknown]
  - Paraesthesia [Unknown]
  - Neck pain [Unknown]

NARRATIVE: CASE EVENT DATE: 2018
